FAERS Safety Report 5097204-4 (Version None)
Quarter: 2006Q3

REPORT INFORMATION
  Report Type: 
  Country: None (occurrence: None)
  Receive Date: 20060828
  Receipt Date: 20060815
  Transmission Date: 20061208
  Serious: Yes (Other)
  Sender: FDA-Public Use
  Company Number: CHNY2006GB02360

PATIENT
  Age: 60 Year
  Sex: Male

DRUGS (12)
  1. NICOTINE [Suspect]
     Indication: SMOKING CESSATION THERAPY
     Dosage: SEE IMAGE
     Route: 062
     Dates: end: 20060419
  2. NICOTINE [Suspect]
     Indication: SMOKING CESSATION THERAPY
     Dosage: SEE IMAGE
     Route: 062
     Dates: start: 20060315
  3. NICOTINE [Suspect]
     Indication: SMOKING CESSATION THERAPY
     Dosage: SEE IMAGE
     Route: 062
     Dates: end: 20060526
  4. NICOTINE [Suspect]
     Indication: SMOKING CESSATION THERAPY
     Dosage: SEE IMAGE
     Route: 062
     Dates: start: 20060419
  5. ASPIRIN [Concomitant]
  6. ATORVASTATIN CALCIUM [Concomitant]
  7. CACIT (CALCIUM CARBONATE, CITRIC ACID) [Concomitant]
  8. NITROLINGUAL (GLYCERYL TRINITRATE) [Concomitant]
  9. PREDNISOLONE [Concomitant]
  10. SALMETEROL (SALMETEROL) [Concomitant]
  11. VENTOLIN [Concomitant]
  12. ALL OTHER THERAPEUTIC PRODUCTS (NO INGREDIENTS/SUBSTANCES) [Concomitant]

REACTIONS (3)
  - HYPERAESTHESIA [None]
  - INFLAMMATION [None]
  - SKIN HYPERTROPHY [None]
